FAERS Safety Report 8499159-9 (Version None)
Quarter: 2012Q2

REPORT INFORMATION
  Report Type: 
  Country: None (occurrence: None)
  Receive Date: 20120627
  Receipt Date: 20120611
  Transmission Date: 20120825
  Serious: Yes (Life-Threatening, Hospitalization)
  Sender: FDA-Public Use
  Company Number: TCI2012A03045

PATIENT
  Age: 64 Year
  Sex: Male

DRUGS (6)
  1. NOVORAPID 30 MIX (INSULIN ASPART) [Concomitant]
  2. PARIET (RABEPRAZOLE SODIUIM) [Concomitant]
  3. ACTOS [Suspect]
     Indication: TYPE 2 DIABETES MELLITUS
     Dosage: 15 MG (15 MG, 1 D), PER ORAL
     Route: 048
     Dates: start: 20110114, end: 20111203
  4. ACINON (NIZATINIDE) [Concomitant]
  5. MUCOSTA (REBAMIPIDE) [Concomitant]
  6. CRESTOR [Concomitant]

REACTIONS (2)
  - BRAIN NEOPLASM [None]
  - LYMPHOMA [None]
